FAERS Safety Report 7407617-0 (Version None)
Quarter: 2011Q2

REPORT INFORMATION
  Report Type: 
  Country: None (occurrence: None)
  Receive Date: 20110405
  Receipt Date: 20110321
  Transmission Date: 20111010
  Serious: Yes (Other)
  Sender: FDA-Public Use
  Company Number: 2011SP006058

PATIENT
  Age: 29 Year
  Sex: Male

DRUGS (1)
  1. PEG-INTRON [Suspect]
     Indication: HEPATITIS C
     Dosage: 100 MCG; QW;
     Dates: start: 20110104

REACTIONS (10)
  - BLOOD PRESSURE DECREASED [None]
  - NECK PAIN [None]
  - THYROID DISORDER [None]
  - MYALGIA [None]
  - MALAISE [None]
  - ASTHENIA [None]
  - SKIN DISORDER [None]
  - HEADACHE [None]
  - PHARYNGEAL MASS [None]
  - ABDOMINAL PAIN UPPER [None]
